FAERS Safety Report 22000880 (Version 1)
Quarter: 2023Q1

REPORT INFORMATION
  Report Type: Spontaneous
  Country: US (occurrence: None)
  Receive Date: 20230215
  Receipt Date: 20230215
  Transmission Date: 20230418
  Serious: No
  Sender: FDA-Public Use
  Company Number: None

PATIENT
  Age: 89 Year
  Sex: Male

DRUGS (8)
  1. ABIRATERONE [Suspect]
     Active Substance: ABIRATERONE
     Indication: Prostate cancer
     Dosage: FREQUENCY : DAILY;?
     Route: 048
  2. VITAMIN B12 [Concomitant]
     Active Substance: CYANOCOBALAMIN
  3. ELIQUIS [Concomitant]
     Active Substance: APIXABAN
  4. METOPROLOL [Concomitant]
     Active Substance: METOPROLOL
  5. MYRBETRIQ [Concomitant]
     Active Substance: MIRABEGRON
  6. PREDNISONE [Suspect]
     Active Substance: PREDNISONE
  7. TRAMADOL [Concomitant]
     Active Substance: TRAMADOL
  8. XGEVA [Concomitant]
     Active Substance: DENOSUMAB

REACTIONS (1)
  - Hospice care [None]
